FAERS Safety Report 8312528-2 (Version None)
Quarter: 2012Q2

REPORT INFORMATION
  Report Type: 
  Country: None (occurrence: None)
  Receive Date: 20120425
  Receipt Date: 20120410
  Transmission Date: 20120825
  Serious: Yes (Other)
  Sender: FDA-Public Use
  Company Number: GB-JNJFOC-20090801359

PATIENT
  Age: 32 Year
  Sex: Female

DRUGS (5)
  1. ACETAMINOPHEN [Suspect]
     Indication: PYREXIA
     Dosage: 2-4 G PER DAY, PO
     Route: 048
     Dates: start: 19981201, end: 19990115
  2. CLARITHROMYCIN [Concomitant]
     Route: 065
     Dates: start: 19990101, end: 19990110
  3. ACETAMINOPHEN [Suspect]
     Route: 048
  4. DOXYCYCLINE [Concomitant]
     Route: 065
     Dates: start: 19981215, end: 19981230
  5. RIFAMPICIN [Interacting]
     Indication: PYREXIA
     Dosage: 600 MG, BID, PO, UNKNOWN DATES; 2 DAYS
     Route: 048

REACTIONS (8)
  - DRUG INTERACTION [None]
  - PSEUDOLYMPHOMA [None]
  - PROTHROMBIN LEVEL INCREASED [None]
  - ALANINE AMINOTRANSFERASE INCREASED [None]
  - HEPATIC FAILURE [None]
  - BLOOD ALKALINE PHOSPHATASE INCREASED [None]
  - HYPERBILIRUBINAEMIA [None]
  - ENCEPHALOPATHY [None]
